FAERS Safety Report 24234665 (Version 1)
Quarter: 2024Q3

REPORT INFORMATION
  Report Type: Spontaneous
  Country: US (occurrence: None)
  Receive Date: 20240820
  Receipt Date: 20240820
  Transmission Date: 20241016
  Serious: Yes (Hospitalization, Disabling, Other)
  Sender: Public
  Company Number: None

PATIENT
  Age: 73 Year
  Sex: Male
  Weight: 165 kg

DRUGS (27)
  1. INDOMETHACIN [Suspect]
     Active Substance: INDOMETHACIN
     Indication: Arthritis
     Route: 048
     Dates: start: 19740101, end: 20210101
  2. INDOMETHACIN [Suspect]
     Active Substance: INDOMETHACIN
     Indication: Pyrexia
  3. TYLENOL [Suspect]
     Active Substance: ACETAMINOPHEN
  4. MOTRIN [Suspect]
     Active Substance: IBUPROFEN
  5. IBUPROFEN [Suspect]
     Active Substance: IBUPROFEN
  6. NAPROXEN [Suspect]
     Active Substance: NAPROXEN
  7. DICLOFENAC [Suspect]
     Active Substance: DICLOFENAC
  8. VOLTAREN [Suspect]
     Active Substance: DICLOFENAC SODIUM
  9. CELECOXIB [Suspect]
     Active Substance: CELECOXIB
  10. ASPIRIN [Suspect]
     Active Substance: ASPIRIN
  11. VIOXX [Suspect]
     Active Substance: ROFECOXIB
  12. METHOTREXATE [Concomitant]
     Active Substance: METHOTREXATE
  13. REMICADE [Concomitant]
     Active Substance: INFLIXIMAB
  14. METHYLPHENIDATE [Concomitant]
     Active Substance: METHYLPHENIDATE
  15. ALLOPURINOL [Concomitant]
     Active Substance: ALLOPURINOL
  16. CLOPIDOGREL [Concomitant]
     Active Substance: CLOPIDOGREL BISULFATE
  17. SYMBICORT [Concomitant]
     Active Substance: BUDESONIDE\FORMOTEROL FUMARATE DIHYDRATE
  18. XOPENEX [Concomitant]
     Active Substance: LEVALBUTEROL HYDROCHLORIDE
  19. AZELASTINE [Concomitant]
     Active Substance: AZELASTINE\AZELASTINE HYDROCHLORIDE
  20. BUPROPION [Concomitant]
     Active Substance: BUPROPION
  21. DULOXETINE [Concomitant]
     Active Substance: DULOXETINE
  22. FLUTICASONE [Concomitant]
     Active Substance: FLUTICASONE
  23. HYDROCHLOROTHIAZIDE [Concomitant]
     Active Substance: HYDROCHLOROTHIAZIDE
  24. POTASSIUM CHLORIDE [Concomitant]
     Active Substance: POTASSIUM CHLORIDE
  25. MONTELUKAST [Concomitant]
     Active Substance: MONTELUKAST SODIUM
  26. KETOCONAZOLE [Concomitant]
     Active Substance: KETOCONAZOLE
  27. PROTONIX [Concomitant]
     Active Substance: PANTOPRAZOLE SODIUM

REACTIONS (8)
  - Normal pressure hydrocephalus [None]
  - Gait disturbance [None]
  - Balance disorder [None]
  - Urinary incontinence [None]
  - Cerebrovascular accident [None]
  - Migraine [None]
  - Transient ischaemic attack [None]
  - Dementia [None]

NARRATIVE: CASE EVENT DATE: 20210801
